FAERS Safety Report 9024744 (Version 3)
Quarter: 2013Q1

REPORT INFORMATION
  Report Type: Spontaneous
  Country: US (occurrence: US)
  Receive Date: 20130121
  Receipt Date: 20130329
  Transmission Date: 20140127
  Serious: No
  Sender: FDA-Public Use
  Company Number: US-009507513-1301USA007808

PATIENT
  Age: 16 None
  Sex: Female
  Weight: 81.63 kg

DRUGS (2)
  1. IMPLANON [Suspect]
     Indication: CONTRACEPTION
     Dosage: UNK
     Route: 059
     Dates: start: 20120703, end: 20130129
  2. IMPLANON [Suspect]
     Dosage: UNK DF, UNK
     Route: 059
     Dates: start: 20130129

REACTIONS (6)
  - Implant site hypertrophy [Unknown]
  - Implant site pain [Unknown]
  - Implant site inflammation [Unknown]
  - Complication of device removal [Unknown]
  - Complication of device insertion [Unknown]
  - Medical device complication [Unknown]
